FAERS Safety Report 8103066-0 (Version None)
Quarter: 2012Q1

REPORT INFORMATION
  Report Type: 
  Country: None (occurrence: None)
  Receive Date: 20120201
  Receipt Date: 20120125
  Transmission Date: 20120608
  Serious: Yes (Hospitalization, Other)
  Sender: FDA-Public Use
  Company Number: US-BAYER-2011-050473

PATIENT
  Age: 20 Year
  Sex: Female
  Weight: 94.785 kg

DRUGS (3)
  1. YAZ [Suspect]
     Indication: CONTRACEPTION
     Dosage: UNK
     Dates: start: 20090101, end: 20100603
  2. NSAID'S [Concomitant]
     Indication: PAIN
  3. YAZ [Suspect]
     Indication: ACNE

REACTIONS (8)
  - DEEP VEIN THROMBOSIS [None]
  - INJURY [None]
  - THROMBOSIS [None]
  - PAIN [None]
  - SINUS TACHYCARDIA [None]
  - PULMONARY EMBOLISM [None]
  - MENTAL DISORDER [None]
  - DEFORMITY [None]
